FAERS Safety Report 9227765 (Version 1)
Quarter: 2013Q2

REPORT INFORMATION
  Report Type: Spontaneous
  Country: US (occurrence: US)
  Receive Date: 20130412
  Receipt Date: 20130412
  Transmission Date: 20140414
  Serious: No
  Sender: FDA-Public Use
  Company Number: US-MYLANLABS-2012S1018241

PATIENT
  Age: 53 Year
  Sex: Female

DRUGS (3)
  1. DILTIAZEM HCL EXTENDED RELEASE CAPSULES, USP [Suspect]
     Indication: BLOOD PRESSURE
     Route: 048
     Dates: start: 2012
  2. PRILOSEC [Concomitant]
     Dosage: 1 TAB PO QD IN AFTERNOON
     Route: 048
  3. LEVOTHYROXINE [Concomitant]
     Dosage: 1 TAB PO QAM
     Route: 048

REACTIONS (3)
  - Drug ineffective [Not Recovered/Not Resolved]
  - Blood pressure inadequately controlled [Not Recovered/Not Resolved]
  - Medication residue present [Not Recovered/Not Resolved]
